FAERS Safety Report 25190017 (Version 3)
Quarter: 2025Q2

REPORT INFORMATION
  Report Type: Report from Study
  Country: US (occurrence: US)
  Receive Date: 20250411
  Receipt Date: 20250616
  Transmission Date: 20250717
  Serious: Yes (Hospitalization, Other)
  Sender: UCB
  Company Number: US-UCBSA-2025012294

PATIENT
  Age: 3 Year
  Sex: Female

DRUGS (14)
  1. FINTEPLA [Suspect]
     Active Substance: FENFLURAMINE
     Indication: Severe myoclonic epilepsy of infancy
     Dosage: 1.4 MILLILITER, 2X/DAY (BID)
     Dates: start: 20241115
  2. FINTEPLA [Suspect]
     Active Substance: FENFLURAMINE
     Dosage: 1.5 MILLILITER, 2X/DAY (BID)
  3. FINTEPLA [Suspect]
     Active Substance: FENFLURAMINE
     Dosage: 1.6 MILLILITER, 2X/DAY (BID)
     Route: 048
  4. FINTEPLA [Suspect]
     Active Substance: FENFLURAMINE
     Dosage: 1.8 MILLILITER, 3X/DAY (TID)
     Dates: start: 20250401
  5. DIAZEPAM [Concomitant]
     Active Substance: DIAZEPAM
     Indication: Product used for unknown indication
  6. IBUPROFEN [Concomitant]
     Active Substance: IBUPROFEN
     Indication: Product used for unknown indication
     Route: 048
  7. TYLENOL [Concomitant]
     Active Substance: ACETAMINOPHEN
     Indication: Product used for unknown indication
     Route: 048
  8. EPIDIOLEX [Concomitant]
     Active Substance: CANNABIDIOL
     Indication: Product used for unknown indication
     Dosage: 1.7 MILLILITER, 2X/DAY (BID)
     Route: 048
  9. EPIDIOLEX [Concomitant]
     Active Substance: CANNABIDIOL
     Dosage: 1.8 MILLILITER, 2X/DAY (BID)
     Route: 048
  10. DIVALPROEX SODIUM [Concomitant]
     Active Substance: DIVALPROEX SODIUM
     Indication: Product used for unknown indication
     Route: 048
  11. CLONAZEPAM [Concomitant]
     Active Substance: CLONAZEPAM
     Indication: Product used for unknown indication
     Route: 048
  12. CLOBAZAM [Concomitant]
     Active Substance: CLOBAZAM
     Indication: Product used for unknown indication
     Dosage: 2.5 MILLILITER, 2X/DAY (BID)
     Route: 048
  13. CLOBAZAM [Concomitant]
     Active Substance: CLOBAZAM
     Route: 048
  14. VALTOCO [Concomitant]
     Active Substance: DIAZEPAM
     Indication: Product used for unknown indication

REACTIONS (7)
  - Influenza [Not Recovered/Not Resolved]
  - Seizure [Not Recovered/Not Resolved]
  - Petit mal epilepsy [Recovered/Resolved]
  - Restlessness [Recovered/Resolved]
  - Muscle twitching [Recovered/Resolved]
  - Screaming [Recovered/Resolved]
  - Incorrect dose administered [Unknown]

NARRATIVE: CASE EVENT DATE: 20250223
